FAERS Safety Report 20056647 (Version 1)
Quarter: 2021Q4

REPORT INFORMATION
  Report Type: Spontaneous
  Country: TR (occurrence: TR)
  Receive Date: 20211111
  Receipt Date: 20211111
  Transmission Date: 20220303
  Serious: Yes (Other)
  Sender: FDA-Public Use
  Company Number: TR-ASTELLAS-2021US042804

PATIENT
  Age: 73 Year
  Sex: Male

DRUGS (5)
  1. LEUPROLIDE ACETATE [Suspect]
     Active Substance: LEUPROLIDE ACETATE
     Indication: Hormone-dependent prostate cancer
     Dosage: UNK UNK, UNKNOWN FREQ.
     Route: 065
     Dates: start: 201511
  2. XTANDI [Suspect]
     Active Substance: ENZALUTAMIDE
     Indication: Hormone-dependent prostate cancer
     Route: 065
     Dates: start: 20180309
  3. ZOLEDRONIC ACID [Suspect]
     Active Substance: ZOLEDRONIC ACID
     Indication: Hormone-dependent prostate cancer
     Route: 065
     Dates: start: 201511
  4. BICALUTAMIDE [Suspect]
     Active Substance: BICALUTAMIDE
     Indication: Hormone-dependent prostate cancer
     Route: 065
     Dates: start: 201511
  5. DOCETAXEL [Suspect]
     Active Substance: DOCETAXEL
     Indication: Hormone-dependent prostate cancer
     Route: 065
     Dates: start: 201704, end: 20170906

REACTIONS (4)
  - Prostate cancer [Unknown]
  - Subdural haematoma [Unknown]
  - Seizure [Unknown]
  - Prostatic specific antigen increased [Unknown]

NARRATIVE: CASE EVENT DATE: 20170410
